FAERS Safety Report 11365822 (Version 1)
Quarter: 2015Q3

REPORT INFORMATION
  Report Type: Spontaneous
  Country: US (occurrence: US)
  Receive Date: 20150811
  Receipt Date: 20150811
  Transmission Date: 20151125
  Serious: No
  Sender: FDA-Public Use
  Company Number: US-ENDO PHARMACEUTICALS INC.-2015-000390

PATIENT
  Sex: Male

DRUGS (1)
  1. SUMAVEL DOSEPRO [Suspect]
     Active Substance: SUMATRIPTAN SUCCINATE
     Indication: CLUSTER HEADACHE
     Route: 058

REACTIONS (4)
  - Tunnel vision [Recovered/Resolved]
  - Injection site mass [Recovered/Resolved]
  - Visual impairment [Recovered/Resolved]
  - Incorrect product storage [Recovered/Resolved]
